FAERS Safety Report 19358526 (Version 1)
Quarter: 2021Q2

REPORT INFORMATION
  Report Type: Spontaneous
  Country: PE (occurrence: PE)
  Receive Date: 20210602
  Receipt Date: 20210602
  Transmission Date: 20210717
  Serious: Yes (Hospitalization)
  Sender: FDA-Public Use
  Company Number: PE-ELI_LILLY_AND_COMPANY-PE202105012396

PATIENT
  Age: 62 Year
  Sex: Male

DRUGS (1)
  1. HUMULIN N [Suspect]
     Active Substance: INSULIN HUMAN
     Indication: PRODUCT USED FOR UNKNOWN INDICATION
     Dosage: UNK, UNKNOWN
     Route: 065

REACTIONS (3)
  - Blood glucose increased [Unknown]
  - Burning sensation [Unknown]
  - COVID-19 [Unknown]

NARRATIVE: CASE EVENT DATE: 202104
